FAERS Safety Report 5699050-7 (Version None)
Quarter: 2008Q2

REPORT INFORMATION
  Report Type: 
  Country: None (occurrence: None)
  Receive Date: 20080408
  Receipt Date: 20061030
  Transmission Date: 20081010
  Serious: No
  Sender: FDA-Public Use
  Company Number: US-BAYER-US-2006-031562

PATIENT
  Age: 65 Year
  Sex: Female
  Weight: 112 kg

DRUGS (35)
  1. FLUDARA [Suspect]
     Indication: NON-HODGKIN'S LYMPHOMA
     Dosage: UNIT DOSE: 25 MG/M2
     Route: 042
     Dates: start: 20051007, end: 20060126
  2. RITUXAN [Suspect]
     Indication: NON-HODGKIN'S LYMPHOMA
     Dates: start: 20051007, end: 20060123
  3. 17-B ESTRADIOL 1 MG [Concomitant]
     Dosage: UNIT DOSE: 1 MG
  4. LEVOXYL [Concomitant]
     Dosage: UNIT DOSE: 100 ?G
  5. PRILOSEC [Concomitant]
     Dosage: UNIT DOSE: 20 MG
  6. TOPROL-XL [Concomitant]
     Dosage: UNIT DOSE: 50 MG
  7. LORAZEPAM [Concomitant]
     Dosage: UNIT DOSE: 2 MG
  8. NEURONTIN [Concomitant]
     Dosage: UNIT DOSE: 800 MG
     Dates: end: 20060901
  9. KEPPRA [Concomitant]
     Dosage: UNIT DOSE: 250 MG
     Dates: start: 20060907
  10. FLEXERIL [Concomitant]
     Dosage: UNIT DOSE: 10 MG
     Dates: end: 20060907
  11. TIZANIDINE HCL [Concomitant]
     Dosage: UNIT DOSE: 4 MG
     Dates: start: 20060907
  12. IMITREX [Concomitant]
     Indication: MIGRAINE
  13. MAXALT /USA/ [Concomitant]
     Indication: MIGRAINE
  14. RELPAX [Concomitant]
     Indication: MIGRAINE
  15. TOPAMAX [Concomitant]
     Indication: MIGRAINE
  16. DRAMAMINE [Concomitant]
     Indication: DIZZINESS
  17. WELLBATRIN [Concomitant]
  18. NEFAZODONE HCL [Concomitant]
  19. ALL OTHER THERAPEUTIC PRODUCTS [Concomitant]
  20. TRAZODONE HCL [Concomitant]
  21. PROTONIX [Concomitant]
  22. DARVOCET-N [Concomitant]
  23. HYDROCODONE BITARTRATE + ACETAMINOPHEN [Concomitant]
  24. PROCHLORPERAZINE [Concomitant]
  25. ACETAMINOPHEN W/ CODEINE [Concomitant]
  26. KETOROLAC [Concomitant]
  27. ASCORBIC ACID [Concomitant]
     Dosage: UNIT DOSE: 1000 MG
  28. GLUCOSAMINE [Concomitant]
     Dosage: UNIT DOSE: 500 MG
  29. CHONDROITIN A [Concomitant]
     Dosage: UNIT DOSE: 400 MG
  30. VITAMIN E [Concomitant]
     Dosage: UNIT DOSE: 400 IU
  31. VITAMIN B COMPLEX CAP [Concomitant]
  32. CALCIUM CITRATE W/VITAMIN D NOS [Concomitant]
  33. MAGNESIUM [Concomitant]
     Dosage: UNIT DOSE: 400 MG
  34. ZINC [Concomitant]
     Dosage: UNIT DOSE: 15 MG
  35. VITAMIN D [Concomitant]
     Dosage: UNIT DOSE: 400 IU

REACTIONS (4)
  - DIZZINESS [None]
  - HEADACHE [None]
  - NAUSEA [None]
  - VOMITING [None]
